FAERS Safety Report 21260620 (Version 4)
Quarter: 2022Q3

REPORT INFORMATION
  Report Type: Spontaneous
  Country: US (occurrence: US)
  Receive Date: 20220826
  Receipt Date: 20220902
  Transmission Date: 20221026
  Serious: No
  Sender: FDA-Public Use
  Company Number: US-PFIZER INC-PV202200049390

PATIENT
  Age: 67 Year
  Sex: Female

DRUGS (1)
  1. XELJANZ [Suspect]
     Active Substance: TOFACITINIB CITRATE
     Indication: Still^s disease
     Dosage: 5 MG, 2X/DAY
     Route: 048
     Dates: end: 2022

REACTIONS (3)
  - Off label use [Unknown]
  - Product dose omission issue [Unknown]
  - Emotional distress [Unknown]

NARRATIVE: CASE EVENT DATE: 20220101
